FAERS Safety Report 25983367 (Version 1)
Quarter: 2025Q4

REPORT INFORMATION
  Report Type: Spontaneous
  Country: US (occurrence: None)
  Receive Date: 20251030
  Receipt Date: 20251030
  Transmission Date: 20260118
  Serious: Yes (Hospitalization)
  Sender: FDA-CTU
  Company Number: None

PATIENT
  Sex: Male

DRUGS (2)
  1. RINVOQ [Suspect]
     Active Substance: UPADACITINIB
     Indication: Rheumatoid arthritis
     Dosage: FREQUENCY : DAILY;?
     Route: 048
     Dates: start: 20250324
  2. ENBREL [Suspect]
     Active Substance: ETANERCEPT

REACTIONS (5)
  - Loss of therapeutic response [None]
  - Drug ineffective [None]
  - Pneumonia bacterial [None]
  - Pneumonia fungal [None]
  - Sepsis [None]
